FAERS Safety Report 20702850 (Version 1)
Quarter: 2022Q2

REPORT INFORMATION
  Report Type: Spontaneous
  Country: US (occurrence: US)
  Receive Date: 20220412
  Receipt Date: 20220412
  Transmission Date: 20220721
  Serious: Yes (Life-Threatening, Hospitalization)
  Sender: FDA-Public Use
  Company Number: US-STRIDES ARCOLAB LIMITED-2022SP003745

PATIENT
  Age: 52 Year
  Sex: Male

DRUGS (4)
  1. TACROLIMUS [Suspect]
     Active Substance: TACROLIMUS
     Indication: Lung transplant
     Dosage: UNK
     Route: 065
  2. MYCOPHENOLATE MOFETIL [Suspect]
     Active Substance: MYCOPHENOLATE MOFETIL
     Indication: Lung transplant
     Dosage: UNK
     Route: 065
  3. PREDNISOLONE [Suspect]
     Active Substance: PREDNISOLONE
     Indication: Lung transplant
     Dosage: UNK
     Route: 065
  4. BASILIXIMAB [Suspect]
     Active Substance: BASILIXIMAB
     Indication: Immunosuppressant drug therapy
     Dosage: UNK
     Route: 065

REACTIONS (13)
  - Emphysema [Unknown]
  - Pulmonary embolism [Unknown]
  - Haemorrhage [Unknown]
  - Pulmonary infarction [Unknown]
  - Stenotrophomonas bacteraemia [Unknown]
  - Stenotrophomonas infection [Unknown]
  - Pulmonary oedema [Unknown]
  - Pneumonia fungal [Recovered/Resolved]
  - Scedosporium infection [Recovered/Resolved]
  - Pleurisy [Unknown]
  - Pneumonia bacterial [Unknown]
  - Pneumonia necrotising [Unknown]
  - Off label use [Unknown]
